FAERS Safety Report 6335095-1 (Version None)
Quarter: 2009Q3

REPORT INFORMATION
  Report Type: 
  Country: None (occurrence: None)
  Receive Date: 20090831
  Receipt Date: 20090819
  Transmission Date: 20100115
  Serious: Yes (Death)
  Sender: FDA-Public Use
  Company Number: JP-ROCHE-652678

PATIENT
  Age: 70 Year
  Sex: Male

DRUGS (2)
  1. TAMIFLU [Suspect]
     Indication: INFLUENZA
     Dosage: DOSE FORM: ORAL FORMULATION (NOT OTHERWISE SPECIFIED)
     Route: 048
     Dates: start: 20090817
  2. ANTIBIOTIC NOS [Concomitant]
     Dosage: DOSE FORM: INTRAVENOUS DRIP, DRUG NAME: ANTIBIOTIC PREPARATIONS ACTING MAINLY ON GRAM POSITIVE AN()
     Route: 041

REACTIONS (3)
  - BRONCHITIS [None]
  - EMPHYSEMA [None]
  - GENERAL PHYSICAL HEALTH DETERIORATION [None]
